FAERS Safety Report 6693325-0 (Version None)
Quarter: 2010Q2

REPORT INFORMATION
  Report Type: 
  Country: None (occurrence: None)
  Receive Date: 20100421
  Receipt Date: 20100421
  Transmission Date: 20101027
  Serious: No
  Sender: FDA-Public Use
  Company Number: None

PATIENT
  Age: 88 Year
  Sex: Male
  Weight: 65.7716 kg

DRUGS (1)
  1. CLONIDINE [Suspect]
     Indication: BLOOD PRESSURE
     Dosage: 0.2 MG DAILY 1 PATCH WEEKLY TRANSDERMA 2-24-10 AND WEEKLY SINCE + CURRENTLY
     Route: 062
     Dates: start: 20100224

REACTIONS (1)
  - PRODUCT ADHESION ISSUE [None]
